FAERS Safety Report 4431653-X (Version None)
Quarter: 2004Q3

REPORT INFORMATION
  Report Type: 
  Country: None (occurrence: None)
  Receive Date: 20040721
  Receipt Date: 20040211
  Transmission Date: 20050211
  Serious: Yes (Hospitalization)
  Sender: FDA-Public Use
  Company Number: OMPQ-PR-0402S-0128

PATIENT
  Age: 44 Year
  Sex: Female

DRUGS (1)
  1. OMNIPAQUE 180 [Suspect]
     Dates: start: 20031212, end: 20031212

REACTIONS (2)
  - CHEST PAIN [None]
  - TACHYCARDIA [None]
